FAERS Safety Report 9608461 (Version 1)
Quarter: 2013Q4

REPORT INFORMATION
  Report Type: Spontaneous
  Country: US (occurrence: US)
  Receive Date: 20131009
  Receipt Date: 20131009
  Transmission Date: 20140711
  Serious: No
  Sender: FDA-Public Use
  Company Number: US-009507513-1310USA003729

PATIENT
  Sex: Male

DRUGS (3)
  1. LOTRIMIN ULTRA [Suspect]
     Indication: TINEA CRURIS
     Dosage: UNK, UNKNOWN
     Route: 061
  2. LOTRIMIN ULTRA [Suspect]
     Indication: PAIN
  3. LOTRIMIN ULTRA [Suspect]
     Indication: RASH

REACTIONS (1)
  - Drug effect decreased [Unknown]
